FAERS Safety Report 16779193 (Version 1)
Quarter: 2019Q3

REPORT INFORMATION
  Report Type: Spontaneous
  Country: US (occurrence: US)
  Receive Date: 20190906
  Receipt Date: 20190906
  Transmission Date: 20191005
  Serious: Yes (Hospitalization)
  Sender: FDA-Public Use
  Company Number: US-PROCTER_AND_GAMBLE-GS19094049

PATIENT
  Age: 49 Year
  Sex: Female

DRUGS (2)
  1. CALCIUM CARBONATE, UNSPECIFIED [Suspect]
     Active Substance: CALCIUM CARBONATE
     Indication: GASTROOESOPHAGEAL REFLUX DISEASE
     Dosage: 2 GRAM, DAILY FOR 30 YEARS
     Route: 048
     Dates: start: 1989
  2. THIAZIDE [Concomitant]
     Active Substance: UNSPECIFIED INGREDIENT

REACTIONS (16)
  - Lethargy [Unknown]
  - Condition aggravated [Unknown]
  - Dermatitis psoriasiform [Unknown]
  - Blood creatinine increased [Unknown]
  - Blood calcium increased [Recovered/Resolved]
  - Pyrexia [Recovered/Resolved]
  - Body temperature increased [Recovered/Resolved]
  - Hypercalcaemia [Recovering/Resolving]
  - Milk-alkali syndrome [Recovering/Resolving]
  - Decreased appetite [Unknown]
  - Blood bicarbonate increased [Unknown]
  - Diarrhoea [Recovered/Resolved]
  - Blood phosphorus decreased [Unknown]
  - Hypocalcaemia [Unknown]
  - Asthenia [Unknown]
  - Blood calcium decreased [Recovering/Resolving]
